FAERS Safety Report 11831542 (Version 1)
Quarter: 2015Q4

REPORT INFORMATION
  Report Type: Report from Study
  Country: US (occurrence: US)
  Receive Date: 20151214
  Receipt Date: 20151214
  Transmission Date: 20160305
  Serious: Yes (Death, Hospitalization)
  Sender: FDA-Public Use
  Company Number: US-BAYER-2014-143071

PATIENT
  Age: 65 Year
  Sex: Male

DRUGS (4)
  1. TRACLEER [Concomitant]
     Active Substance: BOSENTAN
     Dosage: UNK
  2. ADEMPAS [Suspect]
     Active Substance: RIOCIGUAT
     Indication: PULMONARY ARTERIAL HYPERTENSION
     Dosage: 2.5 MG, TID
     Route: 048
     Dates: end: 20151129
  3. VENTAVIS [Concomitant]
     Active Substance: ILOPROST
  4. ADEMPAS [Suspect]
     Active Substance: RIOCIGUAT
     Indication: PULMONARY ARTERIAL HYPERTENSION
     Dosage: 2 MG, TID
     Route: 048
     Dates: start: 20140611

REACTIONS (6)
  - Swelling [None]
  - Dyspnoea [None]
  - Fluid retention [None]
  - Dyspnoea [None]
  - Death [Fatal]
  - Blood count abnormal [None]

NARRATIVE: CASE EVENT DATE: 20140918
